FAERS Safety Report 13610239 (Version 4)
Quarter: 2017Q2

REPORT INFORMATION
  Report Type: Spontaneous
  Country: GB (occurrence: GB)
  Receive Date: 20170605
  Receipt Date: 20170629
  Transmission Date: 20170830
  Serious: Yes (Other)
  Sender: FDA-Public Use
  Company Number: GB-CONCORDIA PHARMACEUTICALS INC.-E2B_00008161

PATIENT
  Age: 74 Year
  Sex: Male

DRUGS (7)
  1. MYCOPHENOLATE MOFETIL. [Concomitant]
     Active Substance: MYCOPHENOLATE MOFETIL
     Dates: start: 201410
  2. PREDNISOLONE. [Suspect]
     Active Substance: PREDNISOLONE
     Dates: start: 2014
  3. PREDNISOLONE. [Suspect]
     Active Substance: PREDNISOLONE
     Dates: start: 201406
  4. PREDNISOLONE. [Suspect]
     Active Substance: PREDNISOLONE
     Indication: ANTIBIOTIC PROPHYLAXIS
     Dates: start: 201411
  5. PREDNISOLONE. [Suspect]
     Active Substance: PREDNISOLONE
  6. PREDNISOLONE. [Suspect]
     Active Substance: PREDNISOLONE
  7. FUROSEMIDE. [Concomitant]
     Active Substance: FUROSEMIDE
     Dates: start: 201409

REACTIONS (3)
  - Drug use disorder [Unknown]
  - Osteoporotic fracture [Unknown]
  - Myopathy [Unknown]

NARRATIVE: CASE EVENT DATE: 2014
